FAERS Safety Report 6983225-0 (Version None)
Quarter: 2010Q3

REPORT INFORMATION
  Report Type: 
  Country: None (occurrence: None)
  Receive Date: 20100914
  Receipt Date: 20100707
  Transmission Date: 20110219
  Serious: No
  Sender: FDA-Public Use
  Company Number: US-PFIZER INC-2010085283

PATIENT
  Age: 41 Year
  Sex: Female

DRUGS (4)
  1. LYRICA [Suspect]
     Indication: FIBROMYALGIA
  2. CYMBALTA [Suspect]
  3. LUNESTA [Suspect]
     Indication: INSOMNIA
     Dosage: 6 MG, HS
     Route: 048
     Dates: start: 20090101
  4. DURAGESIC-100 [Concomitant]

REACTIONS (2)
  - DRUG INEFFECTIVE [None]
  - INSOMNIA [None]
